FAERS Safety Report 4371464-7 (Version None)
Quarter: 2004Q2

REPORT INFORMATION
  Report Type: 
  Country: None (occurrence: None)
  Receive Date: 20040601
  Receipt Date: 20040519
  Transmission Date: 20050107
  Serious: Yes (Other)
  Sender: FDA-Public Use
  Company Number: 2004033741

PATIENT
  Sex: Male
  Weight: 83.9154 kg

DRUGS (2)
  1. VIAGRA [Suspect]
     Indication: ERECTILE DYSFUNCTION
     Dosage: 100 MG (100 MG AS NEEDED), ORAL
     Route: 048
  2. OXYCOCET (OXYCOCONE HYDROCHLORIDE, PARACETAMOL) [Concomitant]

REACTIONS (6)
  - ARTHRALGIA [None]
  - DRUG INEFFECTIVE [None]
  - HERNIA [None]
  - HERNIA PAIN [None]
  - PAIN IN EXTREMITY [None]
  - TRIGGER FINGER [None]
